FAERS Safety Report 4982397-7 (Version None)
Quarter: 2006Q2

REPORT INFORMATION
  Report Type: 
  Country: None (occurrence: None)
  Receive Date: 20060425
  Receipt Date: 20060410
  Transmission Date: 20061013
  Serious: Yes (Hospitalization)
  Sender: FDA-Public Use
  Company Number: GBWYE549911APR06

PATIENT
  Sex: Female
  Weight: 46 kg

DRUGS (6)
  1. ENBREL [Suspect]
     Indication: RHEUMATOID ARTHRITIS
     Route: 058
     Dates: start: 20050317, end: 20051212
  2. PREDNISOLONE [Concomitant]
  3. MODURETIC 5-50 [Concomitant]
  4. OMEPRAZOLE [Concomitant]
  5. PARACETAMOL [Concomitant]
  6. GLIBENCLAMIDE [Concomitant]
     Dosage: UNKNOWN

REACTIONS (1)
  - RENAL FAILURE ACUTE [None]
